FAERS Safety Report 15819502 (Version 1)
Quarter: 2019Q1

REPORT INFORMATION
  Report Type: Spontaneous
  Country: ES (occurrence: ES)
  Receive Date: 20190114
  Receipt Date: 20190114
  Transmission Date: 20190417
  Serious: Yes (Hospitalization, Other)
  Sender: FDA-Public Use
  Company Number: ES-TEVA-2019-ES-998374

PATIENT
  Age: 91 Year
  Sex: Female

DRUGS (4)
  1. IRBESARTAN / HIDROCLOROTIAZIDA [Interacting]
     Active Substance: HYDROCHLOROTHIAZIDE\IRBESARTAN
     Route: 048
     Dates: start: 20170116, end: 20181120
  2. CARBAMAZEPINA (561A) [Interacting]
     Active Substance: CARBAMAZEPINE
     Dosage: 50 MILLIGRAM DAILY; 200 MG PER MORNING A QUARTER TABLET
     Route: 048
     Dates: start: 20180104, end: 20181120
  3. GABAPENTINA (2641A) [Suspect]
     Active Substance: GABAPENTIN
     Route: 048
     Dates: start: 2018
  4. ESCITALOPRAM [Interacting]
     Active Substance: ESCITALOPRAM OXALATE
     Dosage: 10 MILLIGRAM DAILY; 10 MG
     Route: 048
     Dates: start: 20170217

REACTIONS (2)
  - Drug interaction [Unknown]
  - Hyponatraemia [Recovering/Resolving]

NARRATIVE: CASE EVENT DATE: 20181013
